FAERS Safety Report 4799776-3 (Version None)
Quarter: 2005Q4

REPORT INFORMATION
  Report Type: 
  Country: None (occurrence: None)
  Receive Date: 20051012
  Receipt Date: 20051012
  Transmission Date: 20060501
  Serious: Yes (Hospitalization)
  Sender: FDA-Public Use
  Company Number: None

PATIENT
  Sex: Female
  Weight: 61.2356 kg

DRUGS (1)
  1. HUMULIN 70/30 [Suspect]
     Indication: DIABETES MELLITUS
     Dosage: (THERAPY DATES: PRIOR TO ADMISSION)

REACTIONS (3)
  - AMNESIA [None]
  - BLOOD GLUCOSE DECREASED [None]
  - TREMOR [None]
